FAERS Safety Report 5662041-6 (Version None)
Quarter: 2008Q1

REPORT INFORMATION
  Report Type: 
  Country: None (occurrence: None)
  Receive Date: 20080312
  Receipt Date: 20080303
  Transmission Date: 20080703
  Serious: Yes (Other)
  Sender: FDA-Public Use
  Company Number: IE-ELI_LILLY_AND_COMPANY-IE200801001488

PATIENT
  Sex: Male

DRUGS (3)
  1. PROZAC [Suspect]
     Dosage: 5 MG, UNK
     Route: 048
     Dates: start: 20070814
  2. PROZAC [Suspect]
     Dosage: 10 MG, EACH EVENING
     Route: 048
     Dates: start: 20070821
  3. PROZAC [Suspect]
     Dosage: 20 MG, DAILY (1/D)
     Route: 048
     Dates: start: 20071001, end: 20080107

REACTIONS (7)
  - DERMATITIS CONTACT [None]
  - HYPERAESTHESIA [None]
  - INSOMNIA [None]
  - PAIN OF SKIN [None]
  - PARAESTHESIA [None]
  - SKIN DISCOLOURATION [None]
  - SKIN EXFOLIATION [None]
